FAERS Safety Report 8403593-2 (Version None)
Quarter: 2012Q2

REPORT INFORMATION
  Report Type: 
  Country: None (occurrence: None)
  Receive Date: 20120601
  Receipt Date: 20120522
  Transmission Date: 20120825
  Serious: Yes (Hospitalization, Other)
  Sender: FDA-Public Use
  Company Number: US-ABBOTT-10P-163-0687007-00

PATIENT
  Sex: Female
  Weight: 70.37 kg

DRUGS (21)
  1. HUMIRA [Suspect]
     Route: 050
     Dates: start: 20100401, end: 20100801
  2. ENSURE [Concomitant]
     Indication: NUTRITIONAL SUPPORT
     Route: 048
     Dates: start: 20100121, end: 20100515
  3. PREDNISONE TAB [Concomitant]
     Indication: CROHN'S DISEASE
     Route: 048
     Dates: start: 20100307, end: 20100313
  4. MULTI-VITAMINS [Concomitant]
     Route: 048
     Dates: start: 20100531, end: 20100708
  5. CAFFEINE [Concomitant]
     Dosage: 2 SERVINGS OF SODA DAILY
     Route: 048
     Dates: start: 20091113, end: 20100121
  6. PREDNISONE TAB [Concomitant]
     Route: 048
     Dates: start: 20100228, end: 20100308
  7. HUMIRA [Suspect]
     Dates: start: 20100330, end: 20100330
  8. PREDNISONE TAB [Concomitant]
     Route: 048
     Dates: start: 20100221, end: 20100227
  9. PREDNISONE TAB [Concomitant]
     Route: 048
     Dates: start: 20100328, end: 20100402
  10. CALCIUM CARBONATE [Concomitant]
     Dates: start: 20100601, end: 20100801
  11. MULTI-VITAMINS [Concomitant]
     Indication: PRODUCT USED FOR UNKNOWN INDICATION
     Route: 048
     Dates: start: 20100115, end: 20100122
  12. CAFFEINE [Concomitant]
     Indication: PRODUCT USED FOR UNKNOWN INDICATION
     Dosage: 3.5 SERVINGS WEEKLY OF SODA
     Route: 048
     Dates: start: 20100122, end: 20100321
  13. CAFFEINE [Concomitant]
     Dosage: 1 SERVING OF SODA DAILY
     Route: 048
     Dates: start: 20100322, end: 20100531
  14. PREDNISONE TAB [Concomitant]
     Route: 048
     Dates: start: 20100322, end: 20100325
  15. CAFFEINE [Concomitant]
     Dosage: 1.5 SERVINGS OF SODA DAILY
     Route: 048
     Dates: start: 20100708, end: 20100801
  16. CALCIUM CARBONATE [Concomitant]
     Indication: MINERAL SUPPLEMENTATION
     Route: 048
     Dates: start: 20100322, end: 20100801
  17. CAFFEINE CITRATE [Concomitant]
     Dosage: 2 SERVINGS TOTAL
     Route: 048
     Dates: start: 20100322, end: 20100405
  18. HUMIRA [Suspect]
     Indication: CROHN'S DISEASE
     Dates: start: 20100316, end: 20100316
  19. CAFFEINE CITRATE [Concomitant]
     Indication: PRODUCT USED FOR UNKNOWN INDICATION
     Dosage: 1 SERVING DAILY
     Route: 048
     Dates: start: 20091113, end: 20100121
  20. PREDNISONE TAB [Concomitant]
     Route: 048
     Dates: start: 20100314, end: 20100321
  21. PREDNISONE TAB [Concomitant]
     Route: 048
     Dates: start: 20100531, end: 20100801

REACTIONS (8)
  - DYSPEPSIA [None]
  - PAIN [None]
  - ABDOMINAL DISTENSION [None]
  - HAEMOGLOBIN DECREASED [None]
  - PREMATURE LABOUR [None]
  - PRE-ECLAMPSIA [None]
  - INSOMNIA [None]
  - RED BLOOD CELL COUNT DECREASED [None]
